FAERS Safety Report 9813206 (Version 3)
Quarter: 2014Q1

REPORT INFORMATION
  Report Type: Spontaneous
  Country: AU (occurrence: None)
  Receive Date: 20140109
  Receipt Date: 20140210
  Transmission Date: 20141002
  Serious: Yes (Other)
  Sender: FDA-Public Use
  Company Number: AUR-APL-2014-00100

PATIENT
  Age: 66 Year
  Sex: Female

DRUGS (3)
  1. ONDANSETRON [Suspect]
     Indication: VOMITING
  2. ONDANSETRON [Suspect]
     Indication: NAUSEA
  3. ONDANSETRON [Suspect]
     Indication: DECREASED APPETITE

REACTIONS (1)
  - Drug effect decreased [None]
